FAERS Safety Report 10361987 (Version 2)
Quarter: 2014Q3

REPORT INFORMATION
  Report Type: Spontaneous
  Country: GB (occurrence: None)
  Receive Date: 20140714
  Receipt Date: 20140723
  Transmission Date: 20150326
  Serious: Yes (Hospitalization)
  Sender: FDA-Public Use
  Company Number: AUR-APL-2014-07232

PATIENT
  Age: 69 Year
  Sex: Male
  Weight: 96.6 kg

DRUGS (2)
  1. RAMIPRIL. [Suspect]
     Active Substance: RAMIPRIL
     Indication: HYPERTENSION
     Route: 048
  2. ATORVASTATIN (ATORVASTATIN) [Concomitant]
     Active Substance: ATORVASTATIN

REACTIONS (4)
  - Pericarditis [None]
  - Lower respiratory tract infection [None]
  - Arrhythmia [None]
  - Atrial fibrillation [None]
